FAERS Safety Report 18604482 (Version 16)
Quarter: 2022Q4

REPORT INFORMATION
  Report Type: Spontaneous
  Country: CZ (occurrence: CZ)
  Receive Date: 20201211
  Receipt Date: 20221230
  Transmission Date: 20230113
  Serious: Yes (Hospitalization, Other)
  Sender: FDA-Public Use
  Company Number: CZ-ZENTIVA-2020-ZT-032324

PATIENT
  Age: 85 Year
  Sex: Female

DRUGS (74)
  1. ALPRAZOLAM [Suspect]
     Active Substance: ALPRAZOLAM
     Indication: Product used for unknown indication
     Dosage: UNK
     Route: 065
  2. AMLODIPINE [Suspect]
     Active Substance: AMLODIPINE BESYLATE
     Indication: Hypertension
     Dosage: 5 MILLIGRAM
     Route: 048
  3. APIXABAN [Interacting]
     Active Substance: APIXABAN
     Indication: Anticoagulant therapy
     Dosage: 5 MILLIGRAM, DAILY (1-0-1 )
     Route: 048
  4. APIXABAN [Interacting]
     Active Substance: APIXABAN
     Dosage: 5 MILLIGRAM, TWO TIMES A DAY
     Route: 048
  5. DONEPEZIL [Suspect]
     Active Substance: DONEPEZIL
     Indication: Product used for unknown indication
     Dosage: UNK
     Route: 065
  6. IBUPROFEN [Interacting]
     Active Substance: IBUPROFEN
     Indication: Pain
     Dosage: UNK
     Route: 065
  7. METOPROLOL [Suspect]
     Active Substance: METOPROLOL
     Indication: Hypertension
     Dosage: 25 MILLIGRAM, ONCE A DAY
     Route: 048
  8. OMEPRAZOLE [Suspect]
     Active Substance: OMEPRAZOLE
     Indication: Product used for unknown indication
     Dosage: UNK
     Route: 065
  9. ACETAMINOPHEN [Interacting]
     Active Substance: ACETAMINOPHEN
     Indication: Pain
     Dosage: 500 MILLIGRAM, (1.5 TBL. 3?4 TIMES DAILY)
     Route: 065
  10. ACETAMINOPHEN [Interacting]
     Active Substance: ACETAMINOPHEN
     Dosage: 750 MILLIGRAM, ONCE A DAY (1.5 TABLETS 3-4 TIMES A DAY)
     Route: 048
     Dates: start: 2015
  11. PANTOPRAZOLE SODIUM [Suspect]
     Active Substance: PANTOPRAZOLE SODIUM
     Indication: Nausea
     Dosage: 20 MILLIGRAM, ONCE A DAY
     Route: 048
  12. PANTOPRAZOLE SODIUM [Suspect]
     Active Substance: PANTOPRAZOLE SODIUM
     Dosage: 10 MILLIGRAM
     Route: 048
  13. PREGABALIN [Suspect]
     Active Substance: PREGABALIN
     Indication: Post herpetic neuralgia
     Dosage: UNK
     Route: 048
  14. RAMIPRIL [Suspect]
     Active Substance: RAMIPRIL
     Indication: Product used for unknown indication
     Dosage: UNK
     Route: 065
  15. ROSUVASTATIN CALCIUM [Suspect]
     Active Substance: ROSUVASTATIN CALCIUM
     Indication: Product used for unknown indication
     Dosage: 20 MILLIGRAM
     Route: 048
  16. TRAMADOL [Suspect]
     Active Substance: TRAMADOL
     Indication: Product used for unknown indication
     Dosage: UNK
     Route: 065
  17. ZOLPIDEM [Suspect]
     Active Substance: ZOLPIDEM TARTRATE
     Indication: Product used for unknown indication
     Dosage: UNK
     Route: 065
  18. FOLIC ACID [Suspect]
     Active Substance: FOLIC ACID
     Indication: Product used for unknown indication
     Dosage: 1 DOSAGE FORM, EVERY WEEK
     Route: 048
  19. FOLIC ACID [Suspect]
     Active Substance: FOLIC ACID
     Dosage: UNK, ONCE A DAY, (QD (TBL. 1-0-0 (MONDAY)))
     Route: 065
  20. AMIODARONE [Suspect]
     Active Substance: AMIODARONE
     Indication: Atrial fibrillation
     Dosage: UNK
     Route: 065
  21. AMIODARONE [Suspect]
     Active Substance: AMIODARONE
     Dosage: 200 MILLIGRAM, ONCE A DAY
     Route: 048
  22. AMLODIPINE BESYLATE [Suspect]
     Active Substance: AMLODIPINE BESYLATE
     Indication: Product used for unknown indication
     Dosage: 5 MILLIGRAM, ONCE A DAY
     Route: 048
  23. MAGNESIUM ASPARTATE\POTASSIUM ASPARTATE [Suspect]
     Active Substance: MAGNESIUM ASPARTATE\POTASSIUM ASPARTATE
     Indication: Product used for unknown indication
     Dosage: UNK, ONCE A DAY, QD
     Route: 065
  24. MAGNESIUM ASPARTATE\POTASSIUM ASPARTATE [Suspect]
     Active Substance: MAGNESIUM ASPARTATE\POTASSIUM ASPARTATE
     Indication: Product used for unknown indication
     Dosage: 1 DOSAGE FORM, ONCE A DAY
     Route: 048
  25. SODIUM CHONDROITIN SULFATE [Interacting]
     Active Substance: SODIUM CHONDROITIN SULFATE
     Indication: Rheumatoid arthritis
     Dosage: 800 MILLIGRAM, ONCE A DAY, (0-0-1) IN THE EVENING
     Route: 048
  26. CORDARONE [Suspect]
     Active Substance: AMIODARONE HYDROCHLORIDE
     Indication: Product used for unknown indication
     Dosage: 200 MILLIGRAM, ONCE A DAY
     Route: 048
  27. CALCIUM\CHOLECALCIFEROL [Suspect]
     Active Substance: CALCIUM\CHOLECALCIFEROL
     Indication: Calcium deficiency
     Dosage: 1 DOSAGE FORM, ONCE A DAY
     Route: 048
  28. CALCIUM CARBONATE\CHOLECALCIFEROL [Suspect]
     Active Substance: CALCIUM CARBONATE\CHOLECALCIFEROL
     Indication: Calcium deficiency
     Dosage: 1 DOSAGE FORM
     Route: 048
  29. CAPTOPRIL [Suspect]
     Active Substance: CAPTOPRIL
     Indication: Hypertension
     Dosage: UNK
     Route: 065
  30. CHONDROITIN SULFATE (BOVINE) [Suspect]
     Active Substance: CHONDROITIN SULFATE (BOVINE)
     Indication: Rheumatoid arthritis
     Dosage: UNK
     Route: 065
  31. FENTANYL [Suspect]
     Active Substance: FENTANYL
     Indication: Pain
     Dosage: UNK (DOSE REDUCED TO ONE HALF)
     Route: 065
  32. FENTANYL [Suspect]
     Active Substance: FENTANYL
     Dosage: 25 MICROGRAM, EVERY HOUR, (EVERY 72 HOURS)
     Route: 062
     Dates: start: 2015
  33. FENTANYL [Suspect]
     Active Substance: FENTANYL
     Indication: Product used for unknown indication
     Dosage: UNK 25 UG/H EVERY 72 HODIN
     Route: 062
     Dates: start: 2015
  34. GUAIFENESIN [Suspect]
     Active Substance: GUAIFENESIN
     Indication: Product used for unknown indication
     Dosage: UNK
     Route: 065
  35. SODIUM PICOSULFATE [Suspect]
     Active Substance: SODIUM PICOSULFATE
     Indication: Constipation
     Dosage: UNK (10-20 GTT IN THE EVENING) SYRUP
     Route: 048
  36. EUTHYROX [Suspect]
     Active Substance: LEVOTHYROXINE SODIUM
     Indication: Autoimmune thyroiditis
     Dosage: 100 MICROGRAM, ONCE A DAY
     Route: 048
  37. EUTHYROX [Suspect]
     Active Substance: LEVOTHYROXINE SODIUM
     Dosage: 100 MICROGRAM, EVERY WEEK
     Route: 048
  38. EUTHYROX [Suspect]
     Active Substance: LEVOTHYROXINE SODIUM
     Dosage: UNK, ONCE A DAY, (1-0-0, FASTING, EXCEPT SUNDAYS)
     Route: 065
  39. EUTHYROX [Suspect]
     Active Substance: LEVOTHYROXINE SODIUM
     Dosage: UNK, ONCE A DAY
     Route: 065
  40. MELOXICAM [Suspect]
     Active Substance: MELOXICAM
     Indication: Pain
     Dosage: 15 MILLIGRAM, EVERY WEEK 1 TBL IF PAIN, APP. 3 TIMES A WEEK)
     Route: 048
     Dates: start: 2015
  41. MELOXICAM [Suspect]
     Active Substance: MELOXICAM
     Dosage: 1 DOSAGE FORM
     Route: 048
  42. METHOTREXATE [Suspect]
     Active Substance: METHOTREXATE
     Indication: Rheumatoid arthritis
     Dosage: 10 MILLIGRAM, EVERY WEEK
     Route: 048
  43. METHOTREXATE [Suspect]
     Active Substance: METHOTREXATE
     Dosage: 10 MILLIGRAM, ONCE A DAY, (1-0-0, SUNDAY)
     Route: 065
  44. METAMIZOL [Suspect]
     Active Substance: METAMIZOLE SODIUM
     Indication: Hypertension
     Dosage: 500 MILLIGRAM, ONCE A DAY
     Route: 048
     Dates: start: 2015
  45. METAMIZOL [Suspect]
     Active Substance: METAMIZOLE SODIUM
     Indication: Post herpetic neuralgia
  46. METAMIZOLE [Suspect]
     Active Substance: METAMIZOLE
     Indication: Product used for unknown indication
     Dosage: UNK, TWO TIMES A DAY, (BID (500 MG TBL))
     Route: 065
  47. METAMIZOLE [Suspect]
     Active Substance: METAMIZOLE
     Dosage: UNK
     Route: 065
  48. METAMIZOLE [Suspect]
     Active Substance: METAMIZOLE
     Dosage: 500 MILLIGRAM, ONCE A DAY
     Route: 048
     Dates: start: 2015
  49. PREDNISONE [Suspect]
     Active Substance: PREDNISONE
     Indication: Steroid therapy
     Dosage: 5 MILLIGRAM, ONCE A DAY
     Route: 048
  50. PREDNISONE [Suspect]
     Active Substance: PREDNISONE
     Dosage: UNK, ONCE A DAY, (2-0-0)
     Route: 065
  51. PREDNISONE [Suspect]
     Active Substance: PREDNISONE
     Dosage: UNK, ONCE A DAY, (1-0-0)
     Route: 065
  52. PREDNISONE [Suspect]
     Active Substance: PREDNISONE
     Indication: Steroid therapy
     Dosage: 5 MILLIGRAM
     Route: 048
  53. ROSUVASTATIN CALCIUM [Suspect]
     Active Substance: ROSUVASTATIN CALCIUM
     Indication: Product used for unknown indication
     Dosage: 20 MILLIGRAM, ONCE A DAY
     Route: 048
  54. HYDROCHLOROTHIAZIDE\TELMISARTAN [Suspect]
     Active Substance: HYDROCHLOROTHIAZIDE\TELMISARTAN
     Indication: Product used for unknown indication
     Dosage: 1 DOSAGE FORM, ONCE A DAY (1-0-0; 12.5 MG/80 MG)
     Route: 048
  55. TELMISARTAN [Suspect]
     Active Substance: TELMISARTAN
     Indication: Hypertension
     Dosage: UNK, ONCE A DAY (80/12.5 MG TBL)
     Route: 065
  56. TRAZODONE [Suspect]
     Active Substance: TRAZODONE HYDROCHLORIDE
     Indication: Product used for unknown indication
     Dosage: UNK
     Route: 065
  57. SODIUM PICOSULFATE [Suspect]
     Active Substance: SODIUM PICOSULFATE
     Indication: Constipation
     Dosage: UNK
     Route: 065
  58. SODIUM PICOSULFATE [Suspect]
     Active Substance: SODIUM PICOSULFATE
     Dosage: 1 DOSAGE FORM
     Route: 065
  59. SODIUM PICOSULFATE [Suspect]
     Active Substance: SODIUM PICOSULFATE
     Dosage: UNK (10-20 GTT IN THE EVENING )
     Route: 065
  60. FENTANYL [Interacting]
     Active Substance: FENTANYL
     Indication: Pain
     Dosage: 25 MICROGRAM
     Route: 062
  61. ELIQUIS [Suspect]
     Active Substance: APIXABAN
     Indication: Anticoagulant therapy
     Dosage: 5 MILLIGRAM
     Route: 065
  62. GUAIFENESIN [Suspect]
     Active Substance: GUAIFENESIN
     Indication: Product used for unknown indication
     Dosage: UNK
     Route: 065
  63. NICOFURANOSE [Interacting]
     Active Substance: NICOFURANOSE
     Indication: Encephalopathy
     Dosage: UNK, ONCE A DAY
     Route: 048
  64. POTASSIUM ASPARTATE [Suspect]
     Active Substance: POTASSIUM ASPARTATE
     Indication: Product used for unknown indication
     Dosage: UNK
     Route: 065
  65. ZOLPIDEM TARTRATE [Suspect]
     Active Substance: ZOLPIDEM TARTRATE
     Indication: Drug abuse
     Dosage: UNK
     Route: 065
  66. MAGNESIUM ASPARTATE [Suspect]
     Active Substance: MAGNESIUM ASPARTATE
     Indication: Product used for unknown indication
     Dosage: UNK
     Route: 065
  67. OXAZEPAM [Suspect]
     Active Substance: OXAZEPAM
     Indication: Product used for unknown indication
     Dosage: UNK
     Route: 065
  68. BISACODYL [Suspect]
     Active Substance: BISACODYL
     Indication: Constipation
     Dosage: UNK
     Route: 065
  69. LEVOTHYROXINE [Interacting]
     Active Substance: LEVOTHYROXINE
     Indication: Autoimmune thyroiditis
     Dosage: UNK
     Route: 065
  70. FENTANYL CITRATE [Suspect]
     Active Substance: FENTANYL CITRATE
     Indication: Product used for unknown indication
     Dosage: UNK
     Route: 065
  71. MAGNESIUM ASPARTATE\POTASSIUM ASPARTATE [Suspect]
     Active Substance: MAGNESIUM ASPARTATE\POTASSIUM ASPARTATE
     Indication: Product used for unknown indication
     Dosage: UNK
     Route: 065
  72. CALCIUM [Concomitant]
     Active Substance: CALCIUM
     Indication: Product used for unknown indication
     Dosage: 1 DOSAGE FORM, ONCE A DAY
     Route: 048
  73. METOPROLOL [Concomitant]
     Active Substance: METOPROLOL
     Indication: Hypertension
     Dosage: 25 MILLIGRAM, ONCE A DAY
     Route: 048
  74. PREGABALIN [Concomitant]
     Active Substance: PREGABALIN
     Indication: Post herpetic neuralgia
     Dosage: UNK
     Route: 048

REACTIONS (51)
  - Delirium [Recovered/Resolved]
  - Atrial fibrillation [Recovered/Resolved]
  - Immobile [Recovered/Resolved]
  - Urinary retention [Recovered/Resolved]
  - Cerebral atrophy [Recovered/Resolved]
  - Oxygen saturation decreased [Recovered/Resolved]
  - Cognitive disorder [Recovered/Resolved]
  - Hyponatraemia [Recovered/Resolved]
  - Liver function test abnormal [Recovered/Resolved]
  - Hypokalaemia [Recovered/Resolved]
  - Multiple drug therapy [Recovered/Resolved]
  - Vertigo [Recovered/Resolved]
  - Head discomfort [Recovered/Resolved]
  - Confusional state [Recovered/Resolved]
  - Hepatic enzyme increased [Recovered/Resolved]
  - Nausea [Recovered/Resolved]
  - Apathy [Recovered/Resolved]
  - Discomfort [Recovered/Resolved]
  - Anxiety [Recovered/Resolved]
  - Condition aggravated [Recovered/Resolved]
  - Hypertension [Recovered/Resolved]
  - Bedridden [Recovered/Resolved]
  - Listless [Recovering/Resolving]
  - Drug interaction [Recovered/Resolved]
  - Encephalopathy [Recovering/Resolving]
  - General physical health deterioration [Recovering/Resolving]
  - Fall [Recovering/Resolving]
  - Reduced facial expression [Recovered/Resolved]
  - Liver function test increased [Recovered/Resolved]
  - Loss of personal independence in daily activities [Recovered/Resolved]
  - Affect lability [Recovered/Resolved]
  - Mobility decreased [Recovered/Resolved]
  - Dehydration [Recovered/Resolved]
  - Restlessness [Recovered/Resolved]
  - Hypoacusis [Recovered/Resolved]
  - Pelvic fracture [Recovered/Resolved]
  - Dizziness [Recovered/Resolved]
  - Poor quality sleep [Recovering/Resolving]
  - Oxygen saturation decreased [Recovered/Resolved]
  - Foreign body [Recovered/Resolved]
  - Contusion [Recovered/Resolved]
  - Condition aggravated [Recovered/Resolved]
  - Head discomfort [Recovered/Resolved]
  - Sleep disorder [Recovering/Resolving]
  - Fracture [Recovered/Resolved]
  - Anxiety [Recovered/Resolved]
  - Mood swings [Recovered/Resolved]
  - Medication error [Recovered/Resolved]
  - Incorrect dose administered [Unknown]
  - Overdose [Recovered/Resolved]
  - Prescription drug used without a prescription [Unknown]

NARRATIVE: CASE EVENT DATE: 20180101
